FAERS Safety Report 14335674 (Version 2)
Quarter: 2018Q1

REPORT INFORMATION
  Report Type: Spontaneous
  Country: US (occurrence: US)
  Receive Date: 20171229
  Receipt Date: 20180108
  Transmission Date: 20180509
  Serious: Yes (Other)
  Sender: FDA-Public Use
  Company Number: US-TEVA-2017-US-837930

PATIENT
  Age: 17 Year
  Sex: Female

DRUGS (1)
  1. PROAIR HFA [Suspect]
     Active Substance: ALBUTEROL SULFATE
     Indication: ASTHMA EXERCISE INDUCED
     Dosage: 2 PUFFS EVERY 4 HOURS

REACTIONS (4)
  - Cough [Recovered/Resolved]
  - Choking [Recovered/Resolved]
  - Product quality issue [Recovered/Resolved]
  - Product cleaning inadequate [Unknown]

NARRATIVE: CASE EVENT DATE: 201712
